FAERS Safety Report 8489192-5 (Version None)
Quarter: 2012Q3

REPORT INFORMATION
  Report Type: 
  Country: None (occurrence: None)
  Receive Date: 20120705
  Receipt Date: 20120625
  Transmission Date: 20120928
  Serious: Yes (Other)
  Sender: FDA-Public Use
  Company Number: CA-ASTRAZENECA-2012SE38943

PATIENT
  Age: 87 Year
  Sex: Female

DRUGS (7)
  1. PULMICORT [Suspect]
     Indication: ASTHMA
     Dosage: 200 MCG, TWO INHALATIONS TWO TIMES PER DAY
     Route: 055
     Dates: end: 20120101
  2. SYMBICORT [Suspect]
     Indication: ASTHMA
     Dosage: TWO INHALATIONS, TWO TIMES A DAY
     Route: 055
     Dates: start: 20120531
  3. AMOXICILLIN [Concomitant]
  4. CALCIUM [Concomitant]
  5. ACTONEL [Concomitant]
     Indication: OSTEOPOROSIS
     Route: 048
     Dates: start: 20101007
  6. SYMBICORT [Suspect]
     Indication: RESPIRATORY TRACT INFECTION
     Dosage: TWO INHALATIONS, TWO TIMES A DAY
     Route: 055
     Dates: start: 20120531
  7. VITAMIN D [Concomitant]

REACTIONS (3)
  - COUGH [None]
  - RESPIRATORY TRACT CONGESTION [None]
  - DRUG INEFFECTIVE [None]
